FAERS Safety Report 18873102 (Version 1)
Quarter: 2021Q1

REPORT INFORMATION
  Report Type: Spontaneous
  Country: US (occurrence: US)
  Receive Date: 20210210
  Receipt Date: 20210210
  Transmission Date: 20210420
  Serious: Yes (Hospitalization)
  Sender: FDA-Public Use
  Company Number: None

PATIENT
  Sex: Female

DRUGS (15)
  1. SYNTHROID [Concomitant]
     Active Substance: LEVOTHYROXINE SODIUM
     Dates: start: 20180501
  2. ALENDRONATE [Concomitant]
     Active Substance: ALENDRONATE SODIUM
     Dates: start: 20210201
  3. FLUOROMETHOL [Concomitant]
     Active Substance: FLUOROMETHOLONE
     Dates: start: 20190405
  4. MULTI?VITE [Concomitant]
     Dates: start: 20180501
  5. XARELTO [Concomitant]
     Active Substance: RIVAROXABAN
     Dates: start: 20180501
  6. HYDROCHLOROT [Concomitant]
     Active Substance: HYDROCHLOROTHIAZIDE
     Dates: start: 20180830
  7. VITAMIN C [Concomitant]
     Active Substance: ASCORBIC ACID
     Dates: start: 20180501
  8. METOPROLOL TARTRATE. [Concomitant]
     Active Substance: METOPROLOL TARTRATE
     Dates: start: 20180501
  9. XIDRA DRO [Concomitant]
     Dates: start: 20210201
  10. GILENYA [Suspect]
     Active Substance: FINGOLIMOD HYDROCHLORIDE
     Indication: MULTIPLE SCLEROSIS
     Route: 048
     Dates: start: 20180322
  11. FISH OIL [Concomitant]
     Active Substance: FISH OIL
     Dates: start: 20180501
  12. GILENYA [Concomitant]
     Active Substance: FINGOLIMOD HYDROCHLORIDE
     Dates: start: 20210201
  13. CALCIUM/D [Concomitant]
     Dates: start: 20180501
  14. VALACYCLOVIR [Concomitant]
     Active Substance: VALACYCLOVIR HYDROCHLORIDE
     Dates: start: 20180501
  15. DALFAMPRIDINE. [Concomitant]
     Active Substance: DALFAMPRIDINE
     Dates: start: 20210202

REACTIONS (1)
  - Multiple sclerosis relapse [None]
